FAERS Safety Report 4304120-1 (Version None)
Quarter: 2004Q1

REPORT INFORMATION
  Report Type: 
  Country: None (occurrence: None)
  Receive Date: 20040224
  Receipt Date: 20040216
  Transmission Date: 20041129
  Serious: Yes (Hospitalization)
  Sender: FDA-Public Use
  Company Number: 2004008031

PATIENT
  Age: 33 Year
  Sex: Male

DRUGS (2)
  1. ZITHROMAX [Suspect]
     Indication: PHARYNGITIS
     Dosage: 500 MG, ORAL
     Route: 048
     Dates: start: 20040204, end: 20040206
  2. PL GRAN. (CAFFEINE, SALICYLAMIDE, PARACETAMOL, PROMETHAZINE  METHYLENE [Concomitant]

REACTIONS (6)
  - DIZZINESS [None]
  - DRUG ERUPTION [None]
  - DYSPNOEA [None]
  - FEELING ABNORMAL [None]
  - GENERALISED ERYTHEMA [None]
  - PRURITUS [None]
